FAERS Safety Report 8314340-7 (Version None)
Quarter: 2012Q2

REPORT INFORMATION
  Report Type: 
  Country: None (occurrence: None)
  Receive Date: 20120426
  Receipt Date: 20110808
  Transmission Date: 20120825
  Serious: Yes (Other)
  Sender: FDA-Public Use
  Company Number: US-TEVA-US023442

PATIENT
  Sex: Male

DRUGS (3)
  1. MULTI-VITAMIN [Concomitant]
     Route: 048
  2. FLUTICASONE FUROATE [Concomitant]
     Indication: SEASONAL ALLERGY
     Route: 045
     Dates: start: 20030101
  3. PROVIGIL [Suspect]
     Indication: SOMNOLENCE
     Dosage: 200 MILLIGRAM;
     Route: 048
     Dates: start: 20070601

REACTIONS (6)
  - ANXIETY [None]
  - DEPRESSION [None]
  - PARANOIA [None]
  - SOCIAL AVOIDANT BEHAVIOUR [None]
  - DRUG INEFFECTIVE FOR UNAPPROVED INDICATION [None]
  - INSOMNIA [None]
